FAERS Safety Report 11771654 (Version 2)
Quarter: 2015Q4

REPORT INFORMATION
  Report Type: Spontaneous
  Country: US (occurrence: US)
  Receive Date: 20151124
  Receipt Date: 20151229
  Transmission Date: 20160304
  Serious: Yes (Hospitalization, Other)
  Sender: FDA-Public Use
  Company Number: US-CELGENE-USA-2015114485

PATIENT
  Age: 11 Year
  Sex: Female

DRUGS (2)
  1. REVLIMID [Suspect]
     Active Substance: LENALIDOMIDE
     Indication: OFF LABEL USE
     Route: 048
     Dates: start: 201507, end: 20151214
  2. REVLIMID [Suspect]
     Active Substance: LENALIDOMIDE
     Indication: VASCULAR MALFORMATION
     Route: 048
     Dates: start: 20150608

REACTIONS (2)
  - Fallopian tube cyst [Recovered/Resolved]
  - Adnexal torsion [Recovered/Resolved]

NARRATIVE: CASE EVENT DATE: 20150907
